FAERS Safety Report 15030724 (Version 1)
Quarter: 2018Q2

REPORT INFORMATION
  Report Type: Spontaneous
  Country: DE (occurrence: DE)
  Receive Date: 20180619
  Receipt Date: 20180619
  Transmission Date: 20180711
  Serious: Yes (Other)
  Sender: FDA-Public Use
  Company Number: DE-MALLINCKRODT-T201705594

PATIENT

DRUGS (1)
  1. UVADEX [Suspect]
     Active Substance: METHOXSALEN
     Indication: COMPLICATIONS OF TRANSPLANTED LUNG
     Dosage: UNK
     Route: 057

REACTIONS (4)
  - Disease progression [Unknown]
  - Anaemia [Unknown]
  - Cardiovascular disorder [Unknown]
  - Product use in unapproved indication [Unknown]
